FAERS Safety Report 23318311 (Version 2)
Quarter: 2024Q1

REPORT INFORMATION
  Report Type: Report from Study
  Country: CA (occurrence: CA)
  Receive Date: 20231220
  Receipt Date: 20240314
  Transmission Date: 20240410
  Serious: Yes (Death, Other)
  Sender: FDA-Public Use
  Company Number: CA-ABBVIE-5548141

PATIENT
  Sex: Male

DRUGS (1)
  1. LUPRON DEPOT [Suspect]
     Active Substance: LEUPROLIDE ACETATE
     Indication: Prostate cancer
     Route: 030
     Dates: start: 20200429, end: 20231213

REACTIONS (3)
  - Death [Fatal]
  - Metastases to pelvis [Unknown]
  - Metastases to thorax [Unknown]

NARRATIVE: CASE EVENT DATE: 20230101
